FAERS Safety Report 6231337-1 (Version None)
Quarter: 2009Q2

REPORT INFORMATION
  Report Type: 
  Country: None (occurrence: None)
  Receive Date: 20090616
  Receipt Date: 20090601
  Transmission Date: 20091009
  Serious: Yes (Death)
  Sender: FDA-Public Use
  Company Number: DE-GENENTECH-284574

PATIENT

DRUGS (2)
  1. MABTHERA [Suspect]
     Indication: LYMPHOMA
     Dosage: 375 MG/KG, UNK
     Route: 065
  2. BENDAMUSTINE [Suspect]
     Indication: LYMPHOMA
     Dosage: 90 MG/M2, UNK
     Route: 065

REACTIONS (4)
  - DEATH [None]
  - DISEASE PROGRESSION [None]
  - INFECTION [None]
  - LEUKOPENIA [None]
